FAERS Safety Report 7023009-0 (Version None)
Quarter: 2010Q3

REPORT INFORMATION
  Report Type: 
  Country: None (occurrence: None)
  Receive Date: 20100930
  Receipt Date: 20100923
  Transmission Date: 20110219
  Serious: Yes (Other)
  Sender: FDA-Public Use
  Company Number: BR-BAYER-201017334LA

PATIENT
  Age: 27 Year
  Sex: Female

DRUGS (2)
  1. YASMIN [Suspect]
     Indication: ORAL CONTRACEPTION
     Dosage: 21D/4 OR 7D - YASMIN WAS RESTARTED AFTER END OF MENSES
     Route: 048
     Dates: start: 20091201, end: 20100722
  2. DIPIRONA [Concomitant]
     Indication: HEADACHE
     Route: 048

REACTIONS (3)
  - ABORTION [None]
  - AMENORRHOEA [None]
  - PREGNANCY ON ORAL CONTRACEPTIVE [None]
